FAERS Safety Report 22302402 (Version 1)
Quarter: 2023Q2

REPORT INFORMATION
  Report Type: Spontaneous
  Country: NP (occurrence: NP)
  Receive Date: 20230510
  Receipt Date: 20230510
  Transmission Date: 20230722
  Serious: Yes (Death)
  Sender: FDA-Public Use
  Company Number: NP-MACLEODS PHARMACEUTICALS US LTD-MAC2023041183

PATIENT

DRUGS (7)
  1. CLOPIDOGREL [Suspect]
     Active Substance: CLOPIDOGREL BISULFATE
     Indication: Acute myocardial infarction
     Dosage: UNK
     Route: 065
     Dates: start: 20220716, end: 20220716
  2. ASPIRIN [Suspect]
     Active Substance: ASPIRIN
     Indication: Acute myocardial infarction
     Dosage: UNK
     Route: 065
     Dates: start: 20220716, end: 20220716
  3. ENOXAPARIN [Suspect]
     Active Substance: ENOXAPARIN
     Indication: Acute myocardial infarction
     Dosage: 60 MILLIGRAM, SINGLE
     Route: 058
     Dates: start: 20220716, end: 20220716
  4. SODIUM BICARBONATE [Concomitant]
     Active Substance: SODIUM BICARBONATE
     Indication: Metabolic acidosis
     Dosage: UNK
     Route: 065
     Dates: start: 20220716
  5. PHENIRAMINE MALEATE [Concomitant]
     Active Substance: PHENIRAMINE MALEATE
     Indication: Acute myocardial infarction
     Dosage: 45.5 MILLIGRAM, SINGLE
     Route: 042
     Dates: start: 20220716
  6. HYDROCORTISONE [Concomitant]
     Active Substance: HYDROCORTISONE
     Indication: Acute myocardial infarction
     Dosage: 200 MILLIGRAM, SINGLE
     Route: 042
     Dates: start: 20220716
  7. EPINEPHRINE [Concomitant]
     Active Substance: EPINEPHRINE
     Indication: Kounis syndrome
     Dosage: UNK, ADRENALINE
     Route: 065
     Dates: start: 20220716

REACTIONS (3)
  - Cardiac arrest [Fatal]
  - Epistaxis [Unknown]
  - Mouth haemorrhage [Unknown]

NARRATIVE: CASE EVENT DATE: 20220716
